FAERS Safety Report 6692783-5 (Version None)
Quarter: 2010Q2

REPORT INFORMATION
  Report Type: 
  Country: None (occurrence: None)
  Receive Date: 20100422
  Receipt Date: 20100414
  Transmission Date: 20101027
  Serious: Yes (Hospitalization)
  Sender: FDA-Public Use
  Company Number: US-SANOFI-AVENTIS-2010SA022450

PATIENT
  Age: 77 Year
  Sex: Female

DRUGS (2)
  1. OPTICLICK [Suspect]
     Indication: TYPE 1 DIABETES MELLITUS
  2. LANTUS [Suspect]
     Indication: TYPE 1 DIABETES MELLITUS
     Dosage: DOSE:30 UNIT(S)
     Route: 058

REACTIONS (3)
  - CAROTID ENDARTERECTOMY [None]
  - INJECTION SITE HAEMATOMA [None]
  - MYOCARDIAL INFARCTION [None]
